FAERS Safety Report 4379975-5 (Version None)
Quarter: 2004Q2

REPORT INFORMATION
  Report Type: 
  Country: None (occurrence: None)
  Receive Date: 20040614
  Receipt Date: 20040602
  Transmission Date: 20050107
  Serious: No
  Sender: FDA-Public Use
  Company Number: US013254

PATIENT
  Age: 64 Year
  Sex: Male
  Weight: 83 kg

DRUGS (10)
  1. ACTIQ [Suspect]
     Indication: NEURALGIA
     Dates: start: 20030724, end: 20030724
  2. GABAPENTIN [Concomitant]
  3. VENLAFAXINE HCL [Concomitant]
  4. ALBUTEROL SULFATE [Concomitant]
  5. THEOPHYLLINE    PHARMACIA [Concomitant]
  6. LACTULOSE [Concomitant]
  7. MORPHINE SULFATE [Concomitant]
  8. ACETAMINOPHEN [Concomitant]
  9. SODIUM CHLORIDE INJ [Concomitant]
  10. ORAMORPH SR [Concomitant]

REACTIONS (1)
  - ANGIONEUROTIC OEDEMA [None]
